FAERS Safety Report 7462115-3 (Version None)
Quarter: 2011Q2

REPORT INFORMATION
  Report Type: 
  Country: None (occurrence: None)
  Receive Date: 20110506
  Receipt Date: 20110429
  Transmission Date: 20111010
  Serious: Yes (Life-Threatening)
  Sender: FDA-Public Use
  Company Number: NL-CELGENEUS-114-21880-11043704

PATIENT
  Sex: Female
  Weight: 66 kg

DRUGS (3)
  1. REVLIMID [Suspect]
     Route: 048
     Dates: start: 20110331
  2. DAUNOMYCIN [Suspect]
     Route: 051
     Dates: start: 20110331
  3. CYTARABINE [Suspect]
     Route: 051
     Dates: start: 20110331

REACTIONS (1)
  - CARDIAC FAILURE [None]
